FAERS Safety Report 7012700-8 (Version None)
Quarter: 2010Q3

REPORT INFORMATION
  Report Type: 
  Country: None (occurrence: None)
  Receive Date: 20100924
  Receipt Date: 20100920
  Transmission Date: 20110219
  Serious: Yes (Other)
  Sender: FDA-Public Use
  Company Number: TH-ROCHE-728500

PATIENT
  Age: 73 Year
  Sex: Female

DRUGS (1)
  1. GANCICLOVIR SODIUM [Suspect]
     Dosage: DOSE: 4 MG/0.04ML
     Route: 031

REACTIONS (5)
  - INJECTION SITE REACTION [None]
  - INTRAOCULAR PRESSURE INCREASED [None]
  - MACULAR OEDEMA [None]
  - OPTIC ATROPHY [None]
  - RETINAL ARTERY OCCLUSION [None]
